FAERS Safety Report 15811274 (Version 1)
Quarter: 2019Q1

REPORT INFORMATION
  Report Type: Spontaneous
  Country: US (occurrence: US)
  Receive Date: 20190111
  Receipt Date: 20190111
  Transmission Date: 20190417
  Serious: Yes (Death, Hospitalization)
  Sender: FDA-Public Use
  Company Number: US-JNJFOC-20190101610

PATIENT
  Age: 29 Year
  Sex: Female

DRUGS (1)
  1. DIPHENHYDRAMINE. [Suspect]
     Active Substance: DIPHENHYDRAMINE
     Indication: PRODUCT USED FOR UNKNOWN INDICATION
     Route: 048

REACTIONS (13)
  - Electrocardiogram QT prolonged [Fatal]
  - Tachycardia [Fatal]
  - Suicide attempt [Fatal]
  - Intentional overdose [Fatal]
  - Seizure [Fatal]
  - Brain death [Fatal]
  - Pulseless electrical activity [Fatal]
  - Electrocardiogram QRS complex prolonged [Fatal]
  - Blood pH decreased [Fatal]
  - Blood glucose increased [Fatal]
  - Blood sodium decreased [Fatal]
  - Hallucination [Fatal]
  - Hypertension [Fatal]
